FAERS Safety Report 12253073 (Version 1)
Quarter: 2016Q2

REPORT INFORMATION
  Report Type: Spontaneous
  Country: IT (occurrence: IT)
  Receive Date: 20160411
  Receipt Date: 20160411
  Transmission Date: 20160815
  Serious: Yes (Other)
  Sender: FDA-Public Use
  Company Number: IT-TEVA-651129ISR

PATIENT
  Age: 23 Year
  Sex: Male

DRUGS (3)
  1. VINBLASTIN [Concomitant]
     Active Substance: VINBLASTINE
     Indication: TESTIS CANCER
     Dosage: UNK, CYCLIC
  2. CISPLATIN. [Suspect]
     Active Substance: CISPLATIN
     Indication: TESTIS CANCER
     Dosage: 300 MG/M2, CYCLIC (TOTAL)
  3. BLEOMYCIN [Concomitant]
     Active Substance: BLEOMYCIN SULFATE
     Indication: TESTIS CANCER
     Dosage: UNK, CYCLIC

REACTIONS (1)
  - Encephalopathy [Recovered/Resolved]
